FAERS Safety Report 17087073 (Version 1)
Quarter: 2019Q4

REPORT INFORMATION
  Report Type: Report from Study
  Country: ES (occurrence: ES)
  Receive Date: 20191128
  Receipt Date: 20191128
  Transmission Date: 20200122
  Serious: Yes (Other)
  Sender: FDA-Public Use
  Company Number: ES-IPSEN BIOPHARMACEUTICALS, INC.-2014-3684

PATIENT
  Age: 26 Year
  Sex: Male

DRUGS (3)
  1. INCRELEX [Suspect]
     Active Substance: MECASERMIN
     Indication: OFF LABEL USE
  2. INCRELEX [Suspect]
     Active Substance: MECASERMIN
     Indication: FRIEDREICH^S ATAXIA
     Route: 058
  3. IDEBENONE [Concomitant]
     Active Substance: IDEBENONE
     Indication: PRODUCT USED FOR UNKNOWN INDICATION
     Dosage: 20 MG/KG
     Route: 065

REACTIONS (2)
  - Pituitary tumour benign [Unknown]
  - Off label use [Unknown]
